FAERS Safety Report 12825678 (Version 1)
Quarter: 2016Q4

REPORT INFORMATION
  Report Type: Spontaneous
  Country: US (occurrence: US)
  Receive Date: 20161007
  Receipt Date: 20161007
  Transmission Date: 20170207
  Serious: No
  Sender: FDA-Public Use
  Company Number: US-RB-062633-14

PATIENT
  Age: 26 Year
  Sex: Female
  Weight: 73.16 kg

DRUGS (13)
  1. ZOFRAN [Concomitant]
     Active Substance: ONDANSETRON HYDROCHLORIDE
     Indication: NAUSEA
     Dosage: DOSAGE DETAILS UNKNOWN
     Route: 065
     Dates: end: 20140103
  2. TYLENOL [Concomitant]
     Active Substance: ACETAMINOPHEN
     Indication: PAIN
     Dosage: UNKNOWN DOSAGE DETAILS - AS NEEDED
     Route: 065
  3. PRENATAL VITAMINS                  /02014401/ [Concomitant]
     Active Substance: VITAMINS
     Indication: PRODUCT USED FOR UNKNOWN INDICATION
     Dosage: DOSING DETAILS UNKNOWN
     Route: 065
  4. WELLBUTRIN [Concomitant]
     Active Substance: BUPROPION HYDROCHLORIDE
     Indication: ANXIETY
     Dosage: DOSING DETAILS UNKNOWN; STARTED IN EARLY PREGNANCY
     Route: 065
     Dates: start: 2013
  5. WELLBUTRIN [Concomitant]
     Active Substance: BUPROPION HYDROCHLORIDE
     Indication: DEPRESSION
  6. ZOLOFT [Concomitant]
     Active Substance: SERTRALINE HYDROCHLORIDE
     Indication: DEPRESSION
  7. SUBUTEX [Suspect]
     Active Substance: BUPRENORPHINE HYDROCHLORIDE
     Indication: DRUG DEPENDENCE
     Route: 060
     Dates: start: 20131126, end: 20140209
  8. PITOCIN [Concomitant]
     Active Substance: OXYTOCIN
     Indication: LABOUR INDUCTION
     Dosage: DOSING DETAILS UNKNOWN.
     Route: 065
     Dates: start: 20140207, end: 20140207
  9. LEXAPRO [Concomitant]
     Active Substance: ESCITALOPRAM OXALATE
     Indication: DEPRESSION
  10. ZOLOFT [Concomitant]
     Active Substance: SERTRALINE HYDROCHLORIDE
     Indication: ANXIETY
     Dosage: DOSING DETAILS UNKNOWN; STARTED IN EARLY PREGNANCY
     Route: 065
     Dates: start: 2013
  11. CERVIDIL                           /00278201/ [Concomitant]
     Indication: LABOUR INDUCTION
     Dosage: DOSING DETAILS UNKNOWN.
     Route: 065
     Dates: start: 20140206, end: 20140207
  12. LIDOCAINE. [Concomitant]
     Active Substance: LIDOCAINE
     Indication: LOCAL ANAESTHESIA
     Dosage: DOSING DETAILS UNKNOWN
     Route: 065
     Dates: start: 20140207, end: 20140207
  13. LEXAPRO [Concomitant]
     Active Substance: ESCITALOPRAM OXALATE
     Indication: ANXIETY
     Dosage: DOSING DETAILS UNKNOWN; STARTED IN EARLY PREGNANCY
     Route: 065
     Dates: start: 2013

REACTIONS (3)
  - Meconium stain [Recovered/Resolved]
  - Maternal exposure during pregnancy [Recovered/Resolved]
  - No adverse event [Recovered/Resolved]

NARRATIVE: CASE EVENT DATE: 20131126
